FAERS Safety Report 25955026 (Version 1)
Quarter: 2025Q4

REPORT INFORMATION
  Report Type: Spontaneous
  Country: CA (occurrence: CA)
  Receive Date: 20251024
  Receipt Date: 20251024
  Transmission Date: 20260118
  Serious: Yes (Disabling)
  Sender: AUROBINDO
  Company Number: CA-AUROBINDO-AUR-APL-2025-052843

PATIENT
  Age: 31 Year
  Sex: Female
  Weight: 62.142 kg

DRUGS (1)
  1. PAROXETINE [Suspect]
     Active Substance: PAROXETINE
     Indication: Depression
     Dosage: 200 MILLIGRAM, ONCE A DAY
     Route: 048

REACTIONS (4)
  - Feeling abnormal [Recovering/Resolving]
  - Maternal exposure during pregnancy [Recovering/Resolving]
  - Sensory disturbance [Recovering/Resolving]
  - Withdrawal syndrome [Recovering/Resolving]
